FAERS Safety Report 12598068 (Version 3)
Quarter: 2016Q3

REPORT INFORMATION
  Report Type: Report from Study
  Country: US (occurrence: US)
  Receive Date: 20160726
  Receipt Date: 20160812
  Transmission Date: 20161109
  Serious: Yes (Death, Other)
  Sender: FDA-Public Use
  Company Number: US-BRISTOL-MYERS SQUIBB COMPANY-BMS-2016-061373

PATIENT
  Age: 44 Year
  Sex: Male
  Weight: 59.9 kg

DRUGS (5)
  1. ZOSYN [Concomitant]
     Active Substance: PIPERACILLIN SODIUM\TAZOBACTAM SODIUM
     Indication: PRODUCT USED FOR UNKNOWN INDICATION
     Dosage: UNK
     Route: 065
     Dates: start: 20160626
  2. VANCOMYCIN [Concomitant]
     Active Substance: VANCOMYCIN
     Indication: PRODUCT USED FOR UNKNOWN INDICATION
     Dosage: UNK
     Route: 065
     Dates: start: 20160626
  3. NIVOLUMAB [Suspect]
     Active Substance: NIVOLUMAB
     Indication: LARYNGEAL SQUAMOUS CELL CARCINOMA
     Dosage: 240 MG, QWK
     Route: 042
     Dates: start: 20160623, end: 20160707
  4. INCB24360 [Suspect]
     Active Substance: EPACADOSTAT
     Indication: LARYNGEAL SQUAMOUS CELL CARCINOMA
     Dosage: 300 MG, BID
     Route: 048
     Dates: start: 20160623, end: 20160714
  5. CLINDAMYCIN [Concomitant]
     Active Substance: CLINDAMYCIN\CLINDAMYCIN PHOSPHATE
     Indication: PRODUCT USED FOR UNKNOWN INDICATION
     Dosage: UNK
     Route: 065
     Dates: start: 20160626

REACTIONS (1)
  - Exsanguination [Fatal]

NARRATIVE: CASE EVENT DATE: 20160715
